FAERS Safety Report 7937276-X (Version None)
Quarter: 2011Q4

REPORT INFORMATION
  Report Type: 
  Country: None (occurrence: None)
  Receive Date: 20111123
  Receipt Date: 20111115
  Transmission Date: 20120403
  Serious: Yes (Other)
  Sender: FDA-Public Use
  Company Number: US-BAYER-2011-027259

PATIENT
  Age: 63 Year
  Sex: Female
  Weight: 52.154 kg

DRUGS (1)
  1. YAZ [Suspect]
     Indication: ACNE
     Dosage: UNK
     Route: 048
     Dates: start: 20080101

REACTIONS (8)
  - PAIN [None]
  - ANXIETY [None]
  - ANHEDONIA [None]
  - CHOLECYSTECTOMY [None]
  - INJURY [None]
  - GENERAL PHYSICAL HEALTH DETERIORATION [None]
  - EMOTIONAL DISTRESS [None]
  - MENTAL DISORDER [None]
